FAERS Safety Report 16964195 (Version 1)
Quarter: 2019Q4

REPORT INFORMATION
  Report Type: Spontaneous
  Country: US (occurrence: US)
  Receive Date: 20190909
  Receipt Date: 20190909
  Transmission Date: 20200122
  Serious: Yes (Other)
  Sender: FDA-Public Use
  Company Number: None

PATIENT
  Age: 76 Year
  Sex: Male
  Weight: 71.21 kg

DRUGS (1)
  1. PATRIOT FLEX, REGULAR STRENGTH [Suspect]
     Active Substance: CLOVE OIL
     Indication: ROTATOR CUFF SYNDROME
     Route: 061
     Dates: start: 20190615, end: 20190731

REACTIONS (1)
  - Haematoma [None]

NARRATIVE: CASE EVENT DATE: 20190826
